FAERS Safety Report 8912817 (Version 1)
Quarter: 2012Q4

REPORT INFORMATION
  Report Type: 
  Country: US (occurrence: US)
  Receive Date: 20121116
  Receipt Date: 20121116
  Transmission Date: 20130627
  Serious: No
  Sender: FDA-Public Use
  Company Number: US-PFIZER INC-2012282951

PATIENT
  Age: 46 Year
  Sex: Female
  Weight: 56.69 kg

DRUGS (1)
  1. DIFLUCAN [Suspect]
     Indication: YEAST INFECTION
     Dosage: 150 mg, 1x/day
     Route: 048
     Dates: start: 20120918, end: 20120919

REACTIONS (2)
  - Nausea [Recovered/Resolved]
  - Vomiting [Recovered/Resolved]
